FAERS Safety Report 7985528 (Version 2)
Quarter: 2012Q4

REPORT INFORMATION
  Report Type: 
  Country: FR (occurrence: FR)
  Receive Date: 20110610
  Receipt Date: 20120919
  Transmission Date: 20130627
  Serious: Yes (Hospitalization, Other)
  Sender: FDA-Public Use
  Company Number: FR-ELI_LILLY_AND_COMPANY-FR201105008331

PATIENT
  Age: 71 Year
  Sex: Female
  Weight: 76 kg

DRUGS (5)
  1. FORSTEO [Suspect]
     Indication: OSTEOPOROSIS
     Dosage: 20 ug, daily (1/D)
     Route: 058
     Dates: start: 20101028, end: 20110523
  2. FORSTEO [Suspect]
     Dosage: 20 ug, daily (1/D)
     Route: 058
     Dates: start: 20110621
  3. LIPANTHYL [Concomitant]
  4. APROVEL [Concomitant]
  5. BETAHISTINE [Concomitant]

REACTIONS (2)
  - Genital prolapse [Recovering/Resolving]
  - Meniere^s disease [Recovering/Resolving]
